FAERS Safety Report 19089360 (Version 1)
Quarter: 2021Q2

REPORT INFORMATION
  Report Type: Spontaneous
  Country: US (occurrence: US)
  Receive Date: 20210403
  Receipt Date: 20210403
  Transmission Date: 20210717
  Serious: Yes (Other)
  Sender: FDA-Public Use
  Company Number: US-CIPLA LTD.-2021US02554

PATIENT

DRUGS (16)
  1. CARBOPLATIN. [Suspect]
     Active Substance: CARBOPLATIN
     Dosage: 55.7 MILLIGRAM (DURING FIRST CYCLE OF DAY 2)
     Route: 042
  2. CARBOPLATIN. [Suspect]
     Active Substance: CARBOPLATIN
     Dosage: 56.7 MILLIGRAM DURING SECOND CYCLE OF DAY 1)
     Route: 042
  3. CARBOPLATIN. [Suspect]
     Active Substance: CARBOPLATIN
     Dosage: 55.7 MILLIGRAM (DURING THIRD CYCLE OF DAY 2)
     Route: 042
  4. ETOPOSIDE. [Suspect]
     Active Substance: ETOPOSIDE
     Dosage: 23.9 MILLIGRAM (DURING FIRST CYCLE OF DAY2)
     Route: 042
  5. CARBOPLATIN. [Suspect]
     Active Substance: CARBOPLATIN
     Indication: CONGENITAL RETINOBLASTOMA
     Dosage: 55.7 MILLIGRAM (DURING FIRST CYCLE OF DAY 1)
     Route: 042
  6. ETOPOSIDE. [Suspect]
     Active Substance: ETOPOSIDE
     Indication: CONGENITAL RETINOBLASTOMA
     Dosage: 23.9 MILLIGRAM (DURING FIRST CYCLE OF DAY1)
     Route: 042
  7. ETOPOSIDE. [Suspect]
     Active Substance: ETOPOSIDE
     Dosage: 24.3 MILLIGRAM (DURING SECOND CYCLE OF DAY 2)
     Route: 042
  8. VINCRISTINE [Suspect]
     Active Substance: VINCRISTINE
     Dosage: 0.1 MILLIGRAM (DURING SECOND CYCLE OF DAY 1)
     Route: 042
  9. MELPHALAN. [Suspect]
     Active Substance: MELPHALAN
     Indication: RETINOBLASTOMA
     Dosage: UNK (8 WEEKLY INJECTIONS BETWEEN 25?40MICROG)
  10. CARBOPLATIN. [Suspect]
     Active Substance: CARBOPLATIN
     Dosage: 56.7 MILLIGRAM DURING SECOND CYCLE OF DAY 2)
     Route: 042
  11. VINCRISTINE [Suspect]
     Active Substance: VINCRISTINE
     Dosage: 0.1 MILLIGRAM (DURING THID CYCLE OF DAY 1)
     Route: 042
  12. ETOPOSIDE. [Suspect]
     Active Substance: ETOPOSIDE
     Dosage: 23.9 MILLIGRAM (DURING THIRD CYCLE OF DAY1)
     Route: 042
  13. CARBOPLATIN. [Suspect]
     Active Substance: CARBOPLATIN
     Dosage: 55.7 MILLIGRAM (DURING THIRD CYCLE OF DAY 1)
     Route: 042
  14. ETOPOSIDE. [Suspect]
     Active Substance: ETOPOSIDE
     Dosage: 24.3 MILLIGRAM (DURING SECOND CYCLE OF DAY 2)
     Route: 042
  15. ETOPOSIDE. [Suspect]
     Active Substance: ETOPOSIDE
     Dosage: 23.9 MILLIGRAM (DURING THIRD CYCLE OF DAY2)
     Route: 042
  16. VINCRISTINE [Suspect]
     Active Substance: VINCRISTINE
     Indication: CONGENITAL RETINOBLASTOMA
     Dosage: 0.1 MILLIGRAM (DURING FIRST CYCLE OF DAY 1)
     Route: 042

REACTIONS (8)
  - Neutropenia [Unknown]
  - Complication associated with device [Unknown]
  - Nausea [Unknown]
  - Thrombocytopenia [Unknown]
  - Cytopenia [Unknown]
  - Anaemia [Unknown]
  - Vomiting [Unknown]
  - Toxicity to various agents [Unknown]
